FAERS Safety Report 6239251-2 (Version None)
Quarter: 2009Q2

REPORT INFORMATION
  Report Type: 
  Country: None (occurrence: None)
  Receive Date: 20090618
  Receipt Date: 20090602
  Transmission Date: 20091009
  Serious: Yes (Hospitalization, Disabling)
  Sender: FDA-Public Use
  Company Number: CFNP-435

PATIENT
  Age: 1 Year
  Sex: Male

DRUGS (14)
  1. MEIACT MS FINE GRANULES (CEFDITOREN PIVOXIL) [Suspect]
     Dosage: SEE IMAGE
     Dates: start: 20081212, end: 20081220
  2. MEIACT MS FINE GRANULES (CEFDITOREN PIVOXIL) [Suspect]
     Dosage: SEE IMAGE
     Dates: start: 20090105, end: 20090109
  3. MEIACT MS FINE GRANULES (CEFDITOREN PIVOXIL) [Suspect]
     Dosage: SEE IMAGE
     Dates: start: 20090209, end: 20090212
  4. MEIACT MS FINE GRANULES (CEFDITOREN PIVOXIL) [Suspect]
     Dosage: SEE IMAGE
     Dates: start: 20090327, end: 20090328
  5. MEIACT MS FINE GRANULES (CEFDITOREN PIVOXIL) [Suspect]
     Dosage: SEE IMAGE
     Dates: start: 20090331, end: 20090403
  6. MEIACT MS FINE GRANULES (CEFDITOREN PIVOXIL) [Suspect]
     Dosage: SEE IMAGE
     Dates: start: 20090406, end: 20090409
  7. MEIACT MS FINE GRANULES (CEFDITOREN PIVOXIL) [Suspect]
     Dosage: SEE IMAGE
     Dates: start: 20090410, end: 20090413
  8. L-CARBOCYSTEINE [Concomitant]
  9. KETOTIFEN FUMARATE [Concomitant]
  10. OFLOXACIN [Concomitant]
  11. TIPEPIDINE HIBENZATE [Concomitant]
  12. TULOBUTEROL HYDROCHLORIDE [Concomitant]
  13. AMBROXOL HYDROCHLORIDE [Concomitant]
  14. ANTIBIOTICS-RESISTANT LACTIC ACID BACTERIAE [Concomitant]

REACTIONS (13)
  - AGGRESSION [None]
  - AMMONIA INCREASED [None]
  - ASTHMA [None]
  - BRAIN OEDEMA [None]
  - CARNITINE DECREASED [None]
  - CONVULSION [None]
  - HYPOGLYCAEMIA [None]
  - HYPOPHAGIA [None]
  - PARALYSIS [None]
  - PYREXIA [None]
  - RHINITIS [None]
  - STATUS EPILEPTICUS [None]
  - TYMPANIC MEMBRANE PERFORATION [None]
